FAERS Safety Report 22142092 (Version 1)
Quarter: 2023Q1

REPORT INFORMATION
  Report Type: Spontaneous
  Country: US (occurrence: None)
  Receive Date: 20230326
  Receipt Date: 20230326
  Transmission Date: 20230417
  Serious: Yes (Disabling)
  Sender: FDA-Public Use
  Company Number: None

PATIENT
  Age: 8 Year
  Sex: Male
  Weight: 27 kg

DRUGS (3)
  1. MIRALAX [Suspect]
     Active Substance: POLYETHYLENE GLYCOL 3350
     Indication: Constipation
     Dosage: OTHER QUANTITY : 1 CAP FULL;?
     Route: 048
     Dates: start: 20220411, end: 20230324
  2. MIRALAX [Concomitant]
     Active Substance: POLYETHYLENE GLYCOL 3350
  3. Olly kids multivitamin [Concomitant]

REACTIONS (4)
  - Anxiety [None]
  - Mood swings [None]
  - Aggression [None]
  - Tic [None]

NARRATIVE: CASE EVENT DATE: 20230324
